FAERS Safety Report 6287661-X (Version None)
Quarter: 2009Q3

REPORT INFORMATION
  Report Type: 
  Country: None (occurrence: None)
  Receive Date: 20090727
  Receipt Date: 20090727
  Transmission Date: 20100115
  Serious: Yes (Hospitalization)
  Sender: FDA-Public Use
  Company Number: None

PATIENT
  Age: 88 Year
  Sex: Male
  Weight: 107.95 kg

DRUGS (2)
  1. TAMSULOSIN HCL [Suspect]
     Dosage: 0.8 MG, EVERY DAY, PO
     Route: 048
     Dates: start: 20090306, end: 20090707
  2. OXYBUTYNIN [Suspect]
     Dosage: 5 MG, BID, PO
     Route: 048
     Dates: start: 20090306, end: 20090707

REACTIONS (3)
  - DIZZINESS [None]
  - FALL [None]
  - VISION BLURRED [None]
